FAERS Safety Report 18309850 (Version 1)
Quarter: 2020Q3

REPORT INFORMATION
  Report Type: Spontaneous
  Country: US (occurrence: US)
  Receive Date: 20200924
  Receipt Date: 20200924
  Transmission Date: 20201103
  Serious: No
  Sender: FDA-Public Use
  Company Number: US-BEH-2020122530

PATIENT
  Sex: Male

DRUGS (5)
  1. HIZENTRA [Suspect]
     Active Substance: HUMAN IMMUNOGLOBULIN G
     Indication: CHRONIC INFLAMMATORY DEMYELINATING POLYRADICULONEUROPATHY
     Dosage: 17 GRAM, BIW
     Route: 058
     Dates: start: 202003
  2. FOLATE [Concomitant]
     Active Substance: FOLATE SODIUM
  3. ZETIA [Concomitant]
     Active Substance: EZETIMIBE
  4. GABAPENTIN. [Concomitant]
     Active Substance: GABAPENTIN
  5. LOVASTATIN. [Concomitant]
     Active Substance: LOVASTATIN

REACTIONS (2)
  - Paraesthesia [Unknown]
  - Hypoaesthesia [Unknown]
